FAERS Safety Report 16238281 (Version 2)
Quarter: 2019Q2

REPORT INFORMATION
  Report Type: Spontaneous
  Country: US (occurrence: US)
  Receive Date: 20190425
  Receipt Date: 20190506
  Transmission Date: 20190711
  Serious: No
  Sender: FDA-Public Use
  Company Number: US-PFIZER INC-2019169859

PATIENT
  Age: 59 Year
  Sex: Female

DRUGS (2)
  1. BUTORPHANOL TARTRATE. [Suspect]
     Active Substance: BUTORPHANOL TARTRATE
     Dosage: UNK
  2. STADOL [Suspect]
     Active Substance: BUTORPHANOL TARTRATE
     Dosage: UNK

REACTIONS (4)
  - Condition aggravated [Unknown]
  - Anxiety [Unknown]
  - Confusional state [Unknown]
  - Drug hypersensitivity [Unknown]
